FAERS Safety Report 24055716 (Version 1)
Quarter: 2024Q3

REPORT INFORMATION
  Report Type: Spontaneous
  Country: CN (occurrence: CN)
  Receive Date: 20240705
  Receipt Date: 20240705
  Transmission Date: 20241016
  Serious: Yes (Other)
  Sender: MERCK
  Company Number: CN-009507513-2407CHN000159

PATIENT
  Age: 74 Year
  Sex: Male
  Weight: 72 kg

DRUGS (2)
  1. CILASTATIN SODIUM\IMIPENEM [Suspect]
     Active Substance: CILASTATIN SODIUM\IMIPENEM
     Indication: Intestinal obstruction
     Dosage: 0.5 G, Q6H, IV DRIP
     Route: 041
     Dates: start: 20240622, end: 20240624
  2. SODIUM CHLORIDE [Suspect]
     Active Substance: SODIUM CHLORIDE
     Indication: Medication dilution
     Dosage: 100 ML, Q6H, IV DRIP
     Route: 041
     Dates: start: 20240622, end: 20240624

REACTIONS (7)
  - Chills [Recovering/Resolving]
  - Body temperature abnormal [Unknown]
  - Heart rate abnormal [Unknown]
  - Respiratory rate increased [Unknown]
  - Blood pressure abnormal [Unknown]
  - Oxygen saturation abnormal [Unknown]
  - Product use in unapproved indication [Unknown]

NARRATIVE: CASE EVENT DATE: 20240622
